FAERS Safety Report 7944810-2 (Version None)
Quarter: 2011Q4

REPORT INFORMATION
  Report Type: 
  Country: None (occurrence: None)
  Receive Date: 20111129
  Receipt Date: 20111123
  Transmission Date: 20120403
  Serious: Yes (Hospitalization)
  Sender: FDA-Public Use
  Company Number: IT-BRISTOL-MYERS SQUIBB COMPANY-16249153

PATIENT
  Age: 71 Year
  Sex: Male

DRUGS (3)
  1. ROCEPHIN [Concomitant]
     Route: 030
     Dates: start: 20111112, end: 20111113
  2. CLARITHROMYCIN [Suspect]
     Dosage: INTERRUPT ON 13NOV2011
     Dates: start: 20111110, end: 20111113
  3. COUMADIN [Suspect]
     Indication: HEART VALVE REPLACEMENT
     Dosage: COUMADIN 5MG ORAL TABS INTERRUPT ON 13NOV2011
     Route: 048
     Dates: start: 20111111

REACTIONS (3)
  - BRADYARRHYTHMIA [None]
  - HYPOTENSION [None]
  - INTERNATIONAL NORMALISED RATIO INCREASED [None]
